FAERS Safety Report 6065771-X (Version None)
Quarter: 2009Q1

REPORT INFORMATION
  Report Type: 
  Country: None (occurrence: None)
  Receive Date: 20090130
  Receipt Date: 20090121
  Transmission Date: 20090719
  Serious: Yes (Death, Other)
  Sender: FDA-Public Use
  Company Number: 2008EN000171

PATIENT
  Age: 72 Year
  Sex: Female

DRUGS (15)
  1. ABELCET [Suspect]
     Indication: SEPSIS
     Dosage: 385 MG; QD; IV
     Route: 042
     Dates: start: 20081102
  2. FENTANYL-75 [Concomitant]
  3. MEROPENEM [Concomitant]
  4. LINEZOLID [Concomitant]
  5. CIPROFLOXACIN [Concomitant]
  6. AMIKACIN [Concomitant]
  7. HYDROCORTISONE [Concomitant]
  8. FOLIC ACID [Concomitant]
  9. THIAMINE HCL [Concomitant]
  10. COMBIVENT [Concomitant]
  11. ROSUVASTATIN CALCIUM [Concomitant]
  12. DIGOXIN [Concomitant]
  13. OMEPRAZOLE [Concomitant]
  14. HEPARIN [Concomitant]
  15. MIDAZOLAM [Concomitant]

REACTIONS (4)
  - BLOOD PRESSURE INCREASED [None]
  - HEART RATE INCREASED [None]
  - HYPERHIDROSIS [None]
  - RESTLESSNESS [None]
